FAERS Safety Report 9753560 (Version 1)
Quarter: 2013Q4

REPORT INFORMATION
  Report Type: Spontaneous
  Country: US (occurrence: US)
  Receive Date: 20131213
  Receipt Date: 20131213
  Transmission Date: 20140711
  Serious: No
  Sender: FDA-Public Use
  Company Number: US-009507513-1312USA004312

PATIENT
  Age: 32 Year
  Sex: Female
  Weight: 140 kg

DRUGS (1)
  1. NEXPLANON [Suspect]
     Indication: CONTRACEPTION
     Dosage: UNK, 3 YEARS IMPLANT
     Route: 059
     Dates: start: 20131127

REACTIONS (1)
  - Haemorrhage [Unknown]
